FAERS Safety Report 6040111-0 (Version None)
Quarter: 2009Q1

REPORT INFORMATION
  Report Type: 
  Country: None (occurrence: None)
  Receive Date: 20090116
  Receipt Date: 20071211
  Transmission Date: 20090719
  Serious: No
  Sender: FDA-Public Use
  Company Number: US-BRISTOL-MYERS SQUIBB COMPANY-14014518

PATIENT
  Age: 50 Year
  Sex: Female

DRUGS (7)
  1. ABILIFY [Suspect]
     Indication: MAJOR DEPRESSION
     Dates: start: 20060901
  2. EMSAM [Concomitant]
  3. LEVOXYL [Concomitant]
  4. CYTOMEL [Concomitant]
  5. TRIHEXYPHENIDYL [Concomitant]
  6. MULTI-VITAMIN [Concomitant]
  7. OMEGA 3 FATTY ACID [Concomitant]

REACTIONS (1)
  - ALOPECIA [None]
